FAERS Safety Report 8020778-8 (Version None)
Quarter: 2012Q1

REPORT INFORMATION
  Report Type: 
  Country: None (occurrence: None)
  Receive Date: 20120104
  Receipt Date: 20111227
  Transmission Date: 20120608
  Serious: No
  Sender: FDA-Public Use
  Company Number: US-BIOGENIDEC-2011BI047013

PATIENT
  Age: 45 Year
  Sex: Female

DRUGS (2)
  1. TYSABRI [Suspect]
     Indication: MULTIPLE SCLEROSIS
     Route: 042
     Dates: start: 20101007, end: 20110721
  2. TYSABRI [Suspect]
     Route: 042
     Dates: start: 20071206, end: 20090921

REACTIONS (1)
  - MULTIPLE SCLEROSIS RELAPSE [None]
